FAERS Safety Report 4356040-4 (Version None)
Quarter: 2004Q2

REPORT INFORMATION
  Report Type: 
  Country: None (occurrence: None)
  Receive Date: 20040511
  Receipt Date: 20040430
  Transmission Date: 20050107
  Serious: Yes (Death)
  Sender: FDA-Public Use
  Company Number: CA-ROCHE-367139

PATIENT
  Age: 79 Year
  Sex: Female

DRUGS (7)
  1. CELLCEPT [Suspect]
     Indication: DRUG USE FOR UNKNOWN INDICATION
     Route: 065
  2. NEORAL [Suspect]
     Route: 065
  3. CEPHALEXIN [Concomitant]
  4. FUROSEMIDE [Concomitant]
  5. IPRATROPIUM BROMIDE [Concomitant]
  6. KENALOG [Concomitant]
  7. MULTIVITAMIN WITH MINERALS [Concomitant]

REACTIONS (8)
  - ANOREXIA [None]
  - BLOOD CREATININE INCREASED [None]
  - ILEUS [None]
  - IMPAIRED HEALING [None]
  - LOCALISED INFECTION [None]
  - PSYCHOTIC DISORDER [None]
  - RENAL FAILURE ACUTE [None]
  - STAPHYLOCOCCAL INFECTION [None]
